FAERS Safety Report 17437247 (Version 1)
Quarter: 2020Q1

REPORT INFORMATION
  Report Type: Spontaneous
  Country: CL (occurrence: CL)
  Receive Date: 20200219
  Receipt Date: 20200219
  Transmission Date: 20200409
  Serious: Yes (Hospitalization, Other)
  Sender: FDA-Public Use
  Company Number: CL-B.I. PHARMACEUTICALS,INC./RIDGEFIELD-2020-BI-008315

PATIENT
  Age: 35 Year
  Sex: Female

DRUGS (4)
  1. CLONAZEPAM. [Concomitant]
     Active Substance: CLONAZEPAM
     Indication: DEPRESSION
     Route: 065
  2. ARIPIPRAZOLE. [Concomitant]
     Active Substance: ARIPIPRAZOLE
     Indication: DEPRESSION
     Route: 065
  3. PRADAXA [Suspect]
     Active Substance: DABIGATRAN ETEXILATE MESYLATE
     Indication: OVARIAN VEIN THROMBOSIS
     Route: 065
     Dates: start: 201911
  4. BUXON [Concomitant]
     Indication: DEPRESSION
     Route: 065

REACTIONS (6)
  - Ovarian haemorrhage [Recovering/Resolving]
  - Vomiting [Recovering/Resolving]
  - Peritoneal haemorrhage [Recovering/Resolving]
  - Presyncope [Recovering/Resolving]
  - Seizure [Recovering/Resolving]
  - Abdominal pain [Recovering/Resolving]

NARRATIVE: CASE EVENT DATE: 20200211
